FAERS Safety Report 5703015-6 (Version None)
Quarter: 2008Q2

REPORT INFORMATION
  Report Type: 
  Country: None (occurrence: None)
  Receive Date: 20080411
  Receipt Date: 20080331
  Transmission Date: 20081010
  Serious: Yes (Hospitalization)
  Sender: FDA-Public Use
  Company Number: US-ROCHE-554834

PATIENT
  Sex: Male
  Weight: 89 kg

DRUGS (3)
  1. PEGASYS [Suspect]
     Indication: HEPATITIS C
     Route: 058
     Dates: start: 20080207, end: 20080307
  2. RIBAVIRIN [Suspect]
     Indication: HEPATITIS C
     Route: 048
     Dates: start: 20080207, end: 20080313
  3. VX-950 [Suspect]
     Indication: HEPATITIS C
     Route: 048
     Dates: start: 20080207, end: 20080314

REACTIONS (4)
  - ANAEMIA [None]
  - BURSITIS INFECTIVE STAPHYLOCOCCAL [None]
  - COSTOCHONDRITIS [None]
  - PLEURISY [None]
